FAERS Safety Report 23125025 (Version 1)
Quarter: 2023Q4

REPORT INFORMATION
  Report Type: Spontaneous
  Country: US (occurrence: US)
  Receive Date: 20231030
  Receipt Date: 20231030
  Transmission Date: 20240110
  Serious: No
  Sender: FDA-Public Use
  Company Number: US-EPIHEALTH-2023-US-006466

PATIENT
  Age: 40 Year
  Sex: Female
  Weight: 57.15 kg

DRUGS (7)
  1. RHOFADE [Suspect]
     Active Substance: OXYMETAZOLINE HYDROCHLORIDE
     Indication: Rosacea
     Dosage: APPLYING A PEA AMOUNT TO HER FACE AT NIGHT ONCE DAILY FOR THE TX OF ROSACEA
     Route: 061
     Dates: start: 2021, end: 20230302
  2. EMGALITY [Concomitant]
     Active Substance: GALCANEZUMAB-GNLM
  3. ZOFRAN [Concomitant]
     Active Substance: ONDANSETRON HYDROCHLORIDE
  4. MAXALT [Concomitant]
     Active Substance: RIZATRIPTAN BENZOATE
  5. KETOROLAC [Concomitant]
     Active Substance: KETOROLAC TROMETHAMINE
  6. NURTEC ODT [Concomitant]
     Active Substance: RIMEGEPANT SULFATE
  7. LEVETIRACETAM [Concomitant]
     Active Substance: LEVETIRACETAM

REACTIONS (3)
  - Application site pain [Recovered/Resolved]
  - Rosacea [Recovered/Resolved]
  - Application site erythema [Recovered/Resolved]

NARRATIVE: CASE EVENT DATE: 20230301
